FAERS Safety Report 8507948-7 (Version None)
Quarter: 2012Q3

REPORT INFORMATION
  Report Type: 
  Country: None (occurrence: None)
  Receive Date: 20120713
  Receipt Date: 20120705
  Transmission Date: 20120928
  Serious: Yes (Hospitalization)
  Sender: FDA-Public Use
  Company Number: US-BAYER-2011-090979

PATIENT
  Age: 47 Year
  Sex: Female
  Weight: 140.59 kg

DRUGS (24)
  1. LANTUS [Concomitant]
     Indication: TYPE 2 DIABETES MELLITUS
     Dosage: 56 UNITS EACH
     Route: 058
     Dates: start: 20090216, end: 20091021
  2. PROVENTIL-HFA [Concomitant]
     Dosage: 90 MCG/INH 2 PUFF EVERY 6
     Dates: start: 20090630
  3. VICODIN [Concomitant]
     Dosage: 5/500 EVERY 4 HOURS AS NEED
     Route: 048
  4. LISINOPRIL [Concomitant]
     Dosage: 25 MG, DAILY
     Route: 048
  5. NORTRIPTYLINE HCL [Concomitant]
     Dosage: 50 MG, QOD
     Route: 048
  6. KLOR-CON [Concomitant]
     Dosage: 10 MEQ, EVERYDAY
     Route: 048
     Dates: start: 20090630
  7. LASIX [Concomitant]
     Dosage: 20 MG, TID
     Route: 048
     Dates: start: 20090216
  8. DARVOCET [Concomitant]
     Dosage: 100 EVERY 4 TO 6 HOURS
     Route: 048
     Dates: start: 20090720
  9. LANTUS [Concomitant]
     Dosage: 100 U/ML, NIGHT HS
  10. METFORMIN HYDROCHLORIDE [Concomitant]
     Dosage: 500 MG, BID
     Route: 048
     Dates: start: 20040101
  11. HYDROCHLOROTHIAZIDE [Concomitant]
     Indication: HYPERTENSION
     Dosage: 25 MG, DAILY
     Route: 048
  12. SEROQUEL [Concomitant]
     Dosage: 50 MG, EVERYDAY
     Route: 048
  13. AMOXICILLIN AND CLAVULANATE POTASSIUM [Concomitant]
     Dosage: 875 MG, UNK
     Route: 048
     Dates: start: 20090630
  14. ALLOPURINOL [Concomitant]
     Dosage: 100 MG, BID
     Route: 048
  15. OPIUM ALKALOIDS AND DERIVATIVES [Concomitant]
     Dosage: UNK
     Route: 048
     Dates: start: 20090630
  16. MACROBID [Concomitant]
     Dosage: 100 MG, BID
     Route: 048
     Dates: start: 20090824
  17. CIPROFLOXACIN [Concomitant]
     Dosage: 2 DROPS EACH EYE EVERY 4 EYES
     Route: 047
  18. SIMVASTATIN [Concomitant]
     Dosage: 200 MG, HS
     Route: 048
     Dates: start: 20090603
  19. CLONAZEPAM [Concomitant]
     Dosage: 0.5 MG, TID
     Route: 048
  20. EURAX [Concomitant]
     Dosage: UNK UNK, BID
     Route: 061
  21. SALSALATE [Concomitant]
     Dosage: 750 MG, TID
     Route: 048
  22. YAZ [Suspect]
     Indication: CONTRACEPTION
     Dosage: UNK
     Dates: start: 20090401, end: 20090901
  23. IBUPROFEN [Concomitant]
     Indication: PAIN
     Dosage: 800 MG, TID, PRN
     Route: 048
     Dates: start: 20090720, end: 20090813
  24. PRILOSEC [Concomitant]
     Dosage: 20 MG, EVERY DAY
     Route: 048

REACTIONS (9)
  - PAIN IN EXTREMITY [None]
  - DEEP VEIN THROMBOSIS [None]
  - EMOTIONAL DISTRESS [None]
  - ANXIETY [None]
  - PSYCHOLOGICAL TRAUMA [None]
  - INJURY [None]
  - PAIN [None]
  - MENTAL DISORDER [None]
  - OEDEMA PERIPHERAL [None]
